FAERS Safety Report 21790512 (Version 1)
Quarter: 2022Q4

REPORT INFORMATION
  Report Type: Report from Study
  Country: US (occurrence: US)
  Receive Date: 20221228
  Receipt Date: 20221228
  Transmission Date: 20230112
  Serious: Yes (Other)
  Sender: FDA-Public Use
  Company Number: US-CLOVIS ONCOLOGY-CLO-2022-000408

PATIENT
  Age: 59 Year
  Sex: Female
  Weight: 57.692 kg

DRUGS (6)
  1. RUBRACA [Suspect]
     Active Substance: RUCAPARIB CAMSYLATE
     Indication: Ovarian cancer
     Dosage: 600 MILLIGRAM, BID
     Route: 048
     Dates: start: 20220222
  2. RUBRACA [Suspect]
     Active Substance: RUCAPARIB CAMSYLATE
     Dosage: 600 MILLIGRAM, BID
     Route: 048
     Dates: start: 20220222
  3. RUBRACA [Suspect]
     Active Substance: RUCAPARIB CAMSYLATE
     Dosage: 600 MILLIGRAM, BID
     Route: 048
     Dates: start: 20220222
  4. RUBRACA [Suspect]
     Active Substance: RUCAPARIB CAMSYLATE
     Dosage: UNK
  5. RUBRACA [Suspect]
     Active Substance: RUCAPARIB CAMSYLATE
     Dosage: 600 MILLIGRAM, BID
     Route: 048
     Dates: start: 20220222
  6. ZOFRAN [Suspect]
     Active Substance: ONDANSETRON HYDROCHLORIDE
     Indication: Product used for unknown indication

REACTIONS (17)
  - Anaemia [Not Recovered/Not Resolved]
  - Seasonal allergy [Unknown]
  - Dry skin [Not Recovered/Not Resolved]
  - Skin hypertrophy [Not Recovered/Not Resolved]
  - Carbohydrate antigen 125 increased [Not Recovered/Not Resolved]
  - Anxiety [Unknown]
  - Daydreaming [Unknown]
  - Headache [Unknown]
  - Constipation [Recovered/Resolved]
  - Fatigue [Not Recovered/Not Resolved]
  - Nausea [Recovered/Resolved]
  - Decreased appetite [Unknown]
  - Dysgeusia [Unknown]
  - Malaise [Unknown]
  - Drug ineffective [Unknown]
  - Product dose omission issue [Unknown]
  - Product use issue [Unknown]

NARRATIVE: CASE EVENT DATE: 20220428
